FAERS Safety Report 11571713 (Version 1)
Quarter: 2015Q3

REPORT INFORMATION
  Report Type: Spontaneous
  Country: US (occurrence: US)
  Receive Date: 20150916
  Receipt Date: 20150916
  Transmission Date: 20151125
  Serious: No
  Sender: FDA-Public Use
  Company Number: US-ELI_LILLY_AND_COMPANY-US200909007003

PATIENT
  Sex: Female

DRUGS (4)
  1. FORTEO [Suspect]
     Active Substance: TERIPARATIDE
     Dosage: 20 UG, DAILY (1/D)
  2. VITAMIN D [Concomitant]
     Active Substance: CHOLECALCIFEROL
     Dosage: 2000 D/F, UNK
  3. FORTEO [Suspect]
     Active Substance: TERIPARATIDE
     Dosage: 20 UG, DAILY (1/D)
     Dates: start: 200907
  4. CALCIUM [Concomitant]
     Active Substance: CALCIUM
     Dosage: 1200 D/F, UNK

REACTIONS (11)
  - Sensitivity of teeth [Unknown]
  - Depression [Unknown]
  - Erythema [Recovered/Resolved]
  - Vitamin D decreased [Unknown]
  - Pain [Unknown]
  - Oesophageal disorder [Unknown]
  - Anxiety [Unknown]
  - Dysphagia [Unknown]
  - Pruritus [Unknown]
  - Headache [Unknown]
  - Injection site pain [Unknown]

NARRATIVE: CASE EVENT DATE: 2009
